FAERS Safety Report 23418011 (Version 4)
Quarter: 2024Q2

REPORT INFORMATION
  Report Type: Report from Study
  Country: US (occurrence: US)
  Receive Date: 20240118
  Receipt Date: 20240624
  Transmission Date: 20240716
  Serious: Yes (Other)
  Sender: FDA-Public Use
  Company Number: US-ALXN-202401USA000875US

PATIENT
  Sex: Male

DRUGS (1)
  1. ULTOMIRIS [Suspect]
     Active Substance: RAVULIZUMAB-CWVZ
     Indication: Paroxysmal nocturnal haemoglobinuria
     Dosage: UNK
     Route: 041
     Dates: start: 2019

REACTIONS (22)
  - Near death experience [Unknown]
  - Pulmonary mass [Not Recovered/Not Resolved]
  - Thyroid mass [Recovered/Resolved]
  - Sinus headache [Unknown]
  - Paranasal sinus discomfort [Not Recovered/Not Resolved]
  - Nasal septum disorder [Unknown]
  - Nasal congestion [Unknown]
  - Drug hypersensitivity [Unknown]
  - Dysphonia [Not Recovered/Not Resolved]
  - Rosacea [Recovered/Resolved]
  - Dyspnoea [Unknown]
  - Sleep apnoea syndrome [Unknown]
  - Vertigo [Unknown]
  - Sleep disorder [Unknown]
  - Red blood cell count abnormal [Unknown]
  - Brain fog [Unknown]
  - Haemoglobin decreased [Unknown]
  - COVID-19 [Unknown]
  - Poor venous access [Unknown]
  - Vein collapse [Unknown]
  - Tachycardia [Unknown]
  - Arthritis [Unknown]

NARRATIVE: CASE EVENT DATE: 20230101
